FAERS Safety Report 16944898 (Version 2)
Quarter: 2023Q4

REPORT INFORMATION
  Report Type: Other
  Country: DE (occurrence: DE)
  Receive Date: 20191022
  Receipt Date: 20231010
  Transmission Date: 20240110
  Serious: Yes (Hospitalization)
  Sender: FDA-Public Use
  Company Number: DE-MACLEODS PHARMACEUTICALS US LTD-MAC2019023383

PATIENT

DRUGS (9)
  1. LEVOFLOXACIN [Suspect]
     Active Substance: LEVOFLOXACIN
     Indication: Bronchitis
     Dosage: 500 MILLIGRAM, QD, FILM COATED TABLETS, A TOTAL OF 7 TABLETS, (START DATE AND STOP DATE: NOV 2018
     Route: 048
  2. CIPROFLOXACIN [Suspect]
     Active Substance: CIPROFLOXACIN
     Indication: Bronchitis
     Dosage: 1000 MILLIGRAM, QD, (START DATE FEB 2019, STOP DATE: FEB 2019)
     Route: 048
     Dates: start: 201902, end: 201902
  3. CIPROFLOXACIN [Suspect]
     Active Substance: CIPROFLOXACIN
     Dosage: 1000 MILLIGRAM, QD, A TOTAL OF 14 TABLETS (START DATE AND STOP DATE :NOV 2013)
     Route: 048
     Dates: start: 201311, end: 201311
  4. CIPROFLOXACIN [Suspect]
     Active Substance: CIPROFLOXACIN
     Dosage: 2 DOSAGE FORM, 2 DF, UNK (2 PACKS)
     Route: 065
  5. CEFUROXIME [Suspect]
     Active Substance: CEFUROXIME
     Indication: Cystitis noninfective
     Dosage: UNK, START DATE: APR 2019
     Route: 065
     Dates: start: 201904
  6. COTRIM [Suspect]
     Active Substance: SULFAMETHOXAZOLE\TRIMETHOPRIM
     Indication: Cystitis noninfective
     Dosage: UNK, START DATE: UNKNOWN DATE IN DEC 2018
     Route: 065
  7. OFLOXACIN [Suspect]
     Active Substance: OFLOXACIN
     Indication: Cystitis noninfective
     Dosage: UNK, START DATE: DEC 2018
     Route: 065
  8. OFLOXACIN [Suspect]
     Active Substance: OFLOXACIN
     Dosage: UNK, 2 PACKS, START DATE: OCT 2018
     Route: 065
     Dates: start: 201810
  9. OFLOXACIN [Suspect]
     Active Substance: OFLOXACIN
     Dosage: 2 DOSAGE FORM, 2 DF, UNK (2 PACKS)
     Route: 065

REACTIONS (18)
  - Fibromyalgia [Unknown]
  - Muscular weakness [Unknown]
  - Illusion [Unknown]
  - Formication [Unknown]
  - Presyncope [Unknown]
  - General physical health deterioration [Unknown]
  - Musculoskeletal pain [Unknown]
  - Tendon disorder [Unknown]
  - Tendon disorder [Unknown]
  - Back pain [Unknown]
  - Pain in extremity [Unknown]
  - Pain in extremity [Unknown]
  - Pain in extremity [Unknown]
  - Arthralgia [Unknown]
  - Tendon rupture [Unknown]
  - Arthralgia [Unknown]
  - Arthralgia [Unknown]
  - Anxiety [Unknown]

NARRATIVE: CASE EVENT DATE: 20190621
